FAERS Safety Report 17798500 (Version 1)
Quarter: 2020Q2

REPORT INFORMATION
  Report Type: Spontaneous
  Country: US (occurrence: US)
  Receive Date: 20200518
  Receipt Date: 20200518
  Transmission Date: 20200714
  Serious: No
  Sender: FDA-Public Use
  Company Number: US-MICRO LABS LIMITED-ML2020-00578

PATIENT
  Age: 80 Year
  Sex: Female
  Weight: 65.83 kg

DRUGS (5)
  1. PENCILLIN [Concomitant]
     Active Substance: PENICILLIN
  2. NORVASC [Concomitant]
     Active Substance: AMLODIPINE BESYLATE
     Indication: HYPERTENSION
     Dosage: THE PATIENT HAS BEEN TAKING IT FOR YEARS
  3. ELIQUIS [Concomitant]
     Active Substance: APIXABAN
     Indication: ATRIAL FIBRILLATION
  4. VITAMIN D3 [Concomitant]
     Active Substance: CHOLECALCIFEROL
  5. AMOXICILLIN AND CLAVULANATE POTASSIUM TABLETS USP 875 MG/125 MG [Suspect]
     Active Substance: AMOXICILLIN\CLAVULANATE POTASSIUM
     Indication: SINUSITIS
     Dosage: 875 MG/125 MG TWICE A DAY FOR EVERY 12 HOURS
     Route: 048

REACTIONS (3)
  - Vertigo [Recovering/Resolving]
  - Nausea [Unknown]
  - Balance disorder [Unknown]

NARRATIVE: CASE EVENT DATE: 20200222
